FAERS Safety Report 13556823 (Version 1)
Quarter: 2017Q2

REPORT INFORMATION
  Report Type: Spontaneous
  Country: US (occurrence: US)
  Receive Date: 20170517
  Receipt Date: 20170517
  Transmission Date: 20170830
  Serious: Yes (Hospitalization)
  Sender: FDA-Public Use
  Company Number: None

PATIENT
  Age: 77 Year
  Sex: Male
  Weight: 86.64 kg

DRUGS (1)
  1. IMBRUVICA [Suspect]
     Active Substance: IBRUTINIB
     Indication: CHRONIC LYMPHOCYTIC LEUKAEMIA
     Route: 048
     Dates: start: 20161212, end: 20170213

REACTIONS (6)
  - Sepsis [None]
  - Peripheral swelling [None]
  - Pneumonia [None]
  - Dementia [None]
  - Fall [None]
  - Disease complication [None]

NARRATIVE: CASE EVENT DATE: 20170213
